FAERS Safety Report 11225801 (Version 1)
Quarter: 2015Q2

REPORT INFORMATION
  Report Type: Spontaneous
  Country: GB (occurrence: GB)
  Receive Date: 20150629
  Receipt Date: 20150629
  Transmission Date: 20150821
  Serious: Yes (Hospitalization)
  Sender: FDA-Public Use
  Company Number: GB-ELI_LILLY_AND_COMPANY-GB201506005549

PATIENT
  Age: 14 Year
  Sex: Female
  Weight: 56 kg

DRUGS (2)
  1. PARACETAMOL [Concomitant]
     Active Substance: ACETAMINOPHEN
     Dosage: UNK
  2. FLUOXETINE [Suspect]
     Active Substance: FLUOXETINE\FLUOXETINE HYDROCHLORIDE
     Indication: PRODUCT USED FOR UNKNOWN INDICATION
     Dosage: 1 G, UNK
     Route: 048
     Dates: start: 20150530, end: 20150530

REACTIONS (10)
  - Myalgia [Recovering/Resolving]
  - pH urine decreased [Recovering/Resolving]
  - Asthenia [Recovering/Resolving]
  - Confusional state [Recovering/Resolving]
  - Dysarthria [Recovering/Resolving]
  - Haemorrhage [Recovering/Resolving]
  - Hypoaesthesia [Recovering/Resolving]
  - Generalised tonic-clonic seizure [Recovering/Resolving]
  - Urinary retention [Recovering/Resolving]
  - Vomiting [Recovering/Resolving]

NARRATIVE: CASE EVENT DATE: 20150530
